FAERS Safety Report 17450263 (Version 2)
Quarter: 2020Q3

REPORT INFORMATION
  Report Type: Spontaneous
  Country: FR (occurrence: FR)
  Receive Date: 20200224
  Receipt Date: 20200707
  Transmission Date: 20201102
  Serious: Yes (Death, Other)
  Sender: FDA-Public Use
  Company Number: FR-ACCORD-173416

PATIENT
  Age: 59 Year
  Sex: Female
  Weight: 63 kg

DRUGS (23)
  1. MOVICOL [Concomitant]
     Active Substance: POLYETHYLENE GLYCOL 3350\POTASSIUM CHLORIDE\SODIUM BICARBONATE\SODIUM CHLORIDE
  2. DAPTOMYCIN ACCORD [Suspect]
     Active Substance: DAPTOMYCIN
     Indication: STREPTOCOCCAL BACTERAEMIA
     Route: 042
     Dates: start: 20200114, end: 20200120
  3. ZINFORO [Suspect]
     Active Substance: CEFTAROLINE FOSAMIL
     Indication: STREPTOCOCCAL BACTERAEMIA
     Dosage: 600 MG POWDER FOR CONCENTRATE FOR SOLUTION FOR INFUSION
     Route: 048
     Dates: start: 20191230, end: 20200114
  4. DOXYCYCLINE SANDOZ [Suspect]
     Active Substance: DOXYCYCLINE
     Indication: STREPTOCOCCAL BACTERAEMIA
     Dosage: 100 MG, SCORED TABLET
     Route: 048
     Dates: start: 20200124
  5. BACTRIM [Concomitant]
     Active Substance: SULFAMETHOXAZOLE\TRIMETHOPRIM
  6. DOLIPRANE [Concomitant]
     Active Substance: ACETAMINOPHEN
  7. DAPTOMYCIN ACCORD [Suspect]
     Active Substance: DAPTOMYCIN
     Indication: STREPTOCOCCAL BACTERAEMIA
     Route: 042
     Dates: start: 20200110, end: 20200120
  8. VANCOMYCIN MYLAN [Suspect]
     Active Substance: VANCOMYCIN
     Indication: STREPTOCOCCAL BACTERAEMIA
     Route: 041
     Dates: start: 20200124, end: 20200130
  9. CEFOTAXIME [Suspect]
     Active Substance: CEFOTAXIME SODIUM
     Indication: STREPTOCOCCAL BACTERAEMIA
     Dosage: 1 G, POWDER FOR SOLUTION FOR INJECTION (IM?IV)
     Route: 042
     Dates: start: 20191226, end: 20191230
  10. BACLOFEN. [Concomitant]
     Active Substance: BACLOFEN
  11. DIFFU K [Concomitant]
     Active Substance: POTASSIUM CHLORIDE
  12. ZINFORO [Suspect]
     Active Substance: CEFTAROLINE FOSAMIL
     Indication: PRODUCT USED FOR UNKNOWN INDICATION
     Dosage: 600 MG POWDER FOR CONCENTRATE FOR SOLUTION FOR INFUSION
     Route: 048
     Dates: start: 20191230, end: 20200114
  13. DAPTOMYCIN ACCORD [Suspect]
     Active Substance: DAPTOMYCIN
     Indication: STREPTOCOCCAL BACTERAEMIA
     Route: 024
     Dates: start: 20200114, end: 20200120
  14. VANCOMYCIN MYLAN [Suspect]
     Active Substance: VANCOMYCIN
     Indication: STREPTOCOCCAL BACTERAEMIA
     Route: 041
     Dates: start: 20200121, end: 20200130
  15. NEFOPAM MEDISOL [Concomitant]
     Active Substance: NEFOPAM HYDROCHLORIDE
     Dosage: 20 MG / 2 ML SOLUTION FOR INJECTION
  16. XYDALBA [Suspect]
     Active Substance: DALBAVANCIN HYDROCHLORIDE
     Indication: PRODUCT USED FOR UNKNOWN INDICATION
     Route: 048
     Dates: start: 20191230, end: 20200114
  17. DAPTOMYCIN ACCORD [Suspect]
     Active Substance: DAPTOMYCIN
     Indication: STREPTOCOCCAL BACTERAEMIA
     Route: 024
     Dates: start: 20200110, end: 20200114
  18. LANSOPRAZOLE MYLAN [Concomitant]
     Active Substance: LANSOPRAZOLE
  19. LINEZOLID ARROW [Suspect]
     Active Substance: LINEZOLID
     Indication: STREPTOCOCCAL BACTERAEMIA
     Dosage: 600 MG FILM?COATED TABLET
     Route: 048
     Dates: start: 20191226, end: 20191230
  20. XYDALBA [Suspect]
     Active Substance: DALBAVANCIN HYDROCHLORIDE
     Indication: STREPTOCOCCAL BACTERAEMIA
     Route: 042
     Dates: start: 20200110, end: 20200120
  21. RIFADINE [Suspect]
     Active Substance: RIFAMPIN
     Indication: STREPTOCOCCAL BACTERAEMIA
     Dosage: IV 600 MG POWDER AND SOLVENT FOR SOLUTION FOR INFUSION
     Route: 041
     Dates: start: 20200121, end: 20200130
  22. LEVETIRACETAM MYLAN [Concomitant]
     Active Substance: LEVETIRACETAM
  23. LOVENOX [Concomitant]
     Active Substance: ENOXAPARIN SODIUM

REACTIONS (3)
  - Myoclonus [Fatal]
  - Confusional state [Fatal]
  - Metabolic encephalopathy [Fatal]

NARRATIVE: CASE EVENT DATE: 20200126
